FAERS Safety Report 26134980 (Version 1)
Quarter: 2025Q4

REPORT INFORMATION
  Report Type: Other
  Country: CN (occurrence: CN)
  Receive Date: 20251209
  Receipt Date: 20251209
  Transmission Date: 20260117
  Serious: Yes (Other)
  Sender: CHIA TAI TIANQING PHARMACEUTICAL GROUP
  Company Number: None

PATIENT
  Age: 54 Year
  Sex: Male
  Weight: 85.0 kg

DRUGS (1)
  1. ERIBULIN MESYLATE [Suspect]
     Active Substance: ERIBULIN MESYLATE
     Indication: Small intestine leiomyosarcoma
     Dosage: 3.00 MG, QD
     Route: 042
     Dates: start: 20251005, end: 20251005

REACTIONS (1)
  - Myelosuppression [Recovering/Resolving]

NARRATIVE: CASE EVENT DATE: 20251008
